FAERS Safety Report 20212838 (Version 1)
Quarter: 2021Q4

REPORT INFORMATION
  Report Type: Spontaneous
  Country: US (occurrence: None)
  Receive Date: 20211221
  Receipt Date: 20211221
  Transmission Date: 20220303
  Serious: No
  Sender: FDA-Public Use
  Company Number: None

PATIENT
  Age: 60 Year
  Sex: Male
  Weight: 83.25 kg

DRUGS (2)
  1. AMOXICILLIN [Suspect]
     Active Substance: AMOXICILLIN
     Indication: Tooth infection
     Dosage: OTHER QUANTITY : 1 TABLET(S);?FREQUENCY : EVERY 8 HOURS;?
     Route: 048
     Dates: start: 20211211, end: 20211214
  2. CLINDAMYCIN [Suspect]
     Active Substance: CLINDAMYCIN
     Indication: Tooth infection
     Dosage: FREQUENCY : EVERY 8 HOURS;?
     Route: 048
     Dates: start: 20211214, end: 20211217

REACTIONS (3)
  - Diarrhoea [None]
  - Swelling face [None]
  - Mouth swelling [None]

NARRATIVE: CASE EVENT DATE: 20211214
